FAERS Safety Report 8697462 (Version 5)
Quarter: 2013Q3

REPORT INFORMATION
  Report Type: Spontaneous
  Country: US (occurrence: US)
  Receive Date: 20120801
  Receipt Date: 20130906
  Transmission Date: 20140515
  Serious: Yes (Hospitalization)
  Sender: FDA-Public Use
  Company Number: US-ASTRAZENECA-2012SE50772

PATIENT
  Age: 641 Month
  Sex: Female
  Weight: 58.1 kg

DRUGS (6)
  1. NEXIUM [Suspect]
     Indication: GASTROOESOPHAGEAL REFLUX DISEASE
     Route: 048
     Dates: start: 201208
  2. NEXIUM [Suspect]
     Indication: OESOPHAGEAL DISORDER
     Route: 048
     Dates: start: 201208
  3. CLARITIN [Concomitant]
  4. FLONASE [Concomitant]
  5. PROAIR [Concomitant]
  6. TRAMADOL [Concomitant]

REACTIONS (8)
  - Chest pain [Recovered/Resolved]
  - Aphagia [Unknown]
  - Weight decreased [Unknown]
  - Oesophageal disorder [Unknown]
  - Condition aggravated [Unknown]
  - Burn oesophageal [Not Recovered/Not Resolved]
  - Malaise [Not Recovered/Not Resolved]
  - Drug dose omission [Not Recovered/Not Resolved]
